FAERS Safety Report 7331482-3 (Version None)
Quarter: 2011Q1

REPORT INFORMATION
  Report Type: 
  Country: None (occurrence: None)
  Receive Date: 20110304
  Receipt Date: 20110221
  Transmission Date: 20110831
  Serious: Yes (Death, Hospitalization)
  Sender: FDA-Public Use
  Company Number: DE-ALEXION PHARMACEUTICALS INC.-A201100208

PATIENT
  Sex: Male

DRUGS (18)
  1. LEVOTHYROXINE SODIUM [Concomitant]
     Dosage: 100 UG, QD
     Route: 048
  2. TAMSULOSIN HYDROCHLORIDE [Concomitant]
     Dosage: 0.4 MG, QD
     Route: 048
  3. MAGNETRANS                         /00552801/ [Concomitant]
     Dosage: 2X/D
     Route: 048
  4. PANTOPRAZOLE [Concomitant]
     Dosage: 40 MG, BID
     Route: 048
  5. FERROUS SULFATE TAB [Concomitant]
     Dosage: 1 EVERY OTHER DAY
     Route: 048
  6. SOLIRIS [Suspect]
     Dosage: 900 MG, Q2W
     Route: 042
     Dates: end: 20101129
  7. FOLIC ACID [Concomitant]
     Dosage: 5 MG, QD
     Route: 048
  8. ATACAND                            /01421601/ [Concomitant]
     Dosage: 1X/D
     Route: 048
     Dates: start: 20100401
  9. SIMVASTATIN [Concomitant]
     Dosage: 20 MG, QD
     Route: 048
  10. RANEXA [Concomitant]
     Dosage: 375 MG, BID
     Route: 048
  11. PHENPROCOUMON [Concomitant]
     Route: 048
  12. RITUXIMAB [Concomitant]
     Dosage: UNK
     Dates: start: 20110101
  13. SOLIRIS [Suspect]
     Indication: COLD TYPE HAEMOLYTIC ANAEMIA
     Dosage: 600 MG, UNK
     Route: 042
     Dates: start: 20070601
  14. SOLIRIS [Suspect]
     Dosage: 900 MG, Q3W
  15. EPLERENONE [Concomitant]
     Dosage: 50 MG, QD
     Route: 048
  16. FLUDARA [Concomitant]
     Dosage: UNK
     Dates: start: 20110101
  17. NEBIVOLOL [Concomitant]
     Dosage: 5 MG, QD
     Route: 048
  18. ARANESP [Concomitant]
     Dosage: 80, 1 EVERY OTHER WEEK

REACTIONS (4)
  - HAEMOLYTIC ANAEMIA [None]
  - CONDITION AGGRAVATED [None]
  - THROMBOCYTOPENIA [None]
  - MYOCARDIAL INFARCTION [None]
